FAERS Safety Report 21303322 (Version 1)
Quarter: 2022Q3

REPORT INFORMATION
  Report Type: Spontaneous
  Country: US (occurrence: None)
  Receive Date: 20220907
  Receipt Date: 20220907
  Transmission Date: 20221027
  Serious: Yes (Other)
  Sender: FDA-Public Use
  Company Number: None

PATIENT
  Age: 79 Year
  Sex: Female

DRUGS (1)
  1. CEFAZOLIN [Suspect]
     Active Substance: CEFAZOLIN
     Dosage: FREQUENCY : 3 TIMES A DAY;?
     Route: 040
     Dates: start: 20220804, end: 20220805

REACTIONS (2)
  - Loss of consciousness [None]
  - Incontinence [None]

NARRATIVE: CASE EVENT DATE: 20220805
